FAERS Safety Report 4795816-6 (Version None)
Quarter: 2005Q4

REPORT INFORMATION
  Report Type: 
  Country: None (occurrence: None)
  Receive Date: 20051007
  Receipt Date: 20050923
  Transmission Date: 20060501
  Serious: Yes (Other)
  Sender: FDA-Public Use
  Company Number: 2005133340

PATIENT
  Age: 33 Year
  Sex: Female
  Weight: 58.9676 kg

DRUGS (2)
  1. ACTIFED COLD + ALLERGY (PSEUDOEPHEDRINE, TRIPROLIDINE) [Suspect]
     Indication: SINUS DISORDER
     Dosage: 1 TABLET ALMOST DAILY; ORAL
     Route: 048
     Dates: start: 20000101
  2. ACTIFED COLD AND SINUS (PARACETAMOL, PSEUDOEPHEDRINE, CHLORPHENIRAMINE [Suspect]
     Indication: SINUS DISORDER
     Dosage: 1 TABLET ALMOST DAILY; ORAL
     Route: 048
     Dates: start: 20000101

REACTIONS (2)
  - ANEURYSM [None]
  - RAYNAUD'S PHENOMENON [None]
